FAERS Safety Report 9148570 (Version 1)
Quarter: 2013Q1

REPORT INFORMATION
  Report Type: Spontaneous
  Country: CH (occurrence: CH)
  Receive Date: 20130308
  Receipt Date: 20130308
  Transmission Date: 20140127
  Serious: Yes (Death)
  Sender: FDA-Public Use
  Company Number: CH-SANOFI-AVENTIS-2013SA020274

PATIENT
  Age: 78 Year
  Sex: Male

DRUGS (14)
  1. CLOPIDOGREL BISULFATE [Suspect]
     Indication: MITRAL VALVE INCOMPETENCE
     Route: 048
     Dates: start: 20121010, end: 20121126
  2. CEFTRIAXONE [Concomitant]
     Indication: URINARY TRACT INFECTION
     Route: 041
  3. ATORVASTATIN [Concomitant]
     Indication: HYPERLIPIDAEMIA
     Route: 048
  4. BELOC-ZOC COMP [Concomitant]
     Route: 048
  5. DAFALGAN [Concomitant]
     Route: 048
  6. DETRUSITOL [Concomitant]
     Route: 048
  7. DIGOXINE [Concomitant]
     Route: 048
  8. CLOMETHIAZOLE [Concomitant]
     Route: 048
  9. KARDEGIC [Concomitant]
     Route: 048
  10. KEPPRA [Concomitant]
     Indication: CONVULSION
     Route: 048
     Dates: start: 201208
  11. MOTILIUM [Concomitant]
     Route: 048
  12. NEPHROTRANS [Concomitant]
     Route: 048
  13. NITRODERM [Concomitant]
     Dosage: FORM: MEDICATED DRESSINGS
     Route: 062
  14. PANTOPRAZOLE [Concomitant]
     Route: 048

REACTIONS (4)
  - Thrombocytopenia [Fatal]
  - Off label use [Unknown]
  - Haemolytic anaemia [Fatal]
  - Renal failure acute [Fatal]
